FAERS Safety Report 24451765 (Version 1)
Quarter: 2024Q4

REPORT INFORMATION
  Report Type: Spontaneous
  Country: FR (occurrence: FR)
  Receive Date: 20241017
  Receipt Date: 20241017
  Transmission Date: 20250115
  Serious: Yes (Death, Other)
  Sender: TEVA
  Company Number: None

PATIENT
  Age: 71 Year
  Sex: Female

DRUGS (8)
  1. ATORVASTATIN [Suspect]
     Active Substance: ATORVASTATIN
     Indication: Prophylaxis
     Route: 048
     Dates: end: 20240904
  2. METFORMIN [Suspect]
     Active Substance: METFORMIN HYDROCHLORIDE
     Indication: Type 2 diabetes mellitus
     Route: 048
     Dates: end: 20240904
  3. LANTUS [Suspect]
     Active Substance: INSULIN GLARGINE
     Indication: Type 2 diabetes mellitus
     Route: 058
     Dates: end: 202409
  4. HUMALOG [Suspect]
     Active Substance: INSULIN LISPRO
     Indication: Type 2 diabetes mellitus
     Route: 058
     Dates: end: 202409
  5. BISOPROLOL [Suspect]
     Active Substance: BISOPROLOL\BISOPROLOL FUMARATE
     Indication: Prophylaxis
     Dosage: BISOPROLOL FUMARATE
     Route: 048
     Dates: end: 202409
  6. INNOHEP [Suspect]
     Active Substance: TINZAPARIN SODIUM
     Indication: Pulmonary embolism
     Dosage: 14,000 IU ANTI-XA/0.7 ML
     Route: 058
     Dates: start: 202303
  7. INLYTA [Suspect]
     Active Substance: AXITINIB
     Indication: Renal cancer
     Route: 048
     Dates: start: 202408, end: 20240904
  8. INLYTA [Suspect]
     Active Substance: AXITINIB
     Indication: Renal cancer
     Route: 048
     Dates: start: 202407, end: 202408

REACTIONS (2)
  - Coma [Fatal]
  - Hypoglycaemia [Recovered/Resolved]

NARRATIVE: CASE EVENT DATE: 20240801
